FAERS Safety Report 4379816-6 (Version None)
Quarter: 2004Q2

REPORT INFORMATION
  Report Type: 
  Country: None (occurrence: None)
  Receive Date: 20040617
  Receipt Date: 20040609
  Transmission Date: 20050107
  Serious: Yes (Hospitalization)
  Sender: FDA-Public Use
  Company Number: US-ROCHE-370846

PATIENT
  Age: 64 Year
  Sex: Male
  Weight: 72.6 kg

DRUGS (1)
  1. FUZEON [Suspect]
     Indication: HIV INFECTION
     Route: 058
     Dates: start: 20040515

REACTIONS (2)
  - DEHYDRATION [None]
  - PYREXIA [None]
